FAERS Safety Report 15206537 (Version 16)
Quarter: 2021Q3

REPORT INFORMATION
  Report Type: Spontaneous
  Country: US (occurrence: US)
  Receive Date: 20180727
  Receipt Date: 20210820
  Transmission Date: 20211014
  Serious: Yes (Other)
  Sender: FDA-Public Use
  Company Number: US-PFIZER INC-2018299827

PATIENT
  Age: 53 Year
  Sex: Male
  Weight: 120 kg

DRUGS (6)
  1. LYRICA [Suspect]
     Active Substance: PREGABALIN
     Indication: COMPLEX REGIONAL PAIN SYNDROME
     Dosage: 150 MG, 2X/DAY
     Route: 048
  2. LYRICA [Suspect]
     Active Substance: PREGABALIN
     Indication: ESSENTIAL HYPERTENSION
     Dosage: 150 MG, 4X/DAY
     Route: 048
     Dates: start: 2019
  3. LYRICA [Suspect]
     Active Substance: PREGABALIN
     Indication: DIARRHOEA
  4. LYRICA [Suspect]
     Active Substance: PREGABALIN
     Indication: NERVOUS SYSTEM DISORDER
     Dosage: 150 MG, 3X/DAY
  5. LYRICA [Suspect]
     Active Substance: PREGABALIN
     Indication: PAIN
  6. LYRICA [Suspect]
     Active Substance: PREGABALIN
     Indication: HYPOAESTHESIA

REACTIONS (6)
  - Condition aggravated [Unknown]
  - Neuralgia [Unknown]
  - Product prescribing issue [Unknown]
  - Demyelination [Unknown]
  - Drug dependence [Unknown]
  - Arthralgia [Unknown]
